FAERS Safety Report 8005378-8 (Version None)
Quarter: 2011Q4

REPORT INFORMATION
  Report Type: 
  Country: None (occurrence: None)
  Receive Date: 20111223
  Receipt Date: 20111220
  Transmission Date: 20120403
  Serious: Yes (Death, Other)
  Sender: FDA-Public Use
  Company Number: CN-ROCHE-1023651

PATIENT

DRUGS (8)
  1. ACYCLOVIR [Concomitant]
     Indication: PROPHYLAXIS
  2. CYCLOSPORINE [Concomitant]
     Indication: STEM CELL TRANSPLANT
  3. HEPARIN [Concomitant]
     Indication: CARDIOVASCULAR EVENT PROPHYLAXIS
  4. CYCLOPHOSPHAMIDE [Concomitant]
     Indication: STEM CELL TRANSPLANT
  5. ALPROSTADIL [Concomitant]
     Indication: CARDIOVASCULAR EVENT PROPHYLAXIS
  6. RABBIT ANTITHYMOCYTE GLOBULIN [Concomitant]
     Indication: STEM CELL TRANSPLANT
  7. MYCOPHENOLATE MOFETIL (CELLCEPT) [Suspect]
     Indication: STEM CELL TRANSPLANT
  8. SULFAMETHOXAZOLE AND TRIMETHOPRIM [Concomitant]
     Indication: ANTIFUNGAL PROPHYLAXIS

REACTIONS (4)
  - HEPATITIS FULMINANT [None]
  - LUNG INFECTION [None]
  - SEPSIS [None]
  - RESPIRATORY FAILURE [None]
